FAERS Safety Report 14996762 (Version 4)
Quarter: 2019Q3

REPORT INFORMATION
  Report Type: Report from Study
  Country: None (occurrence: RO)
  Receive Date: 20180611
  Receipt Date: 20190807
  Transmission Date: 20191004
  Serious: Yes (Death, Hospitalization, Other)
  Sender: FDA-Public Use
  Company Number: RO-ABBVIE-18K-135-2382320-00

PATIENT
  Sex: Female

DRUGS (1)
  1. DUODOPA [Suspect]
     Active Substance: CARBIDOPA\LEVODOPA
     Indication: PARKINSON^S DISEASE
     Dosage: MD=13.00??CD=4.20??ED=2.50??NRED=1;
     Route: 050
     Dates: start: 20150615

REACTIONS (6)
  - Pneumonia [Unknown]
  - Device colour issue [Unknown]
  - Cardio-respiratory arrest [Fatal]
  - Gait disturbance [Unknown]
  - Medical device change [Unknown]
  - Device material issue [Unknown]

NARRATIVE: CASE EVENT DATE: 2018
